FAERS Safety Report 20435553 (Version 1)
Quarter: 2022Q1

REPORT INFORMATION
  Report Type: Report from Study
  Country: CA (occurrence: CA)
  Receive Date: 20220207
  Receipt Date: 20220207
  Transmission Date: 20220423
  Serious: Yes (Other)
  Sender: FDA-Public Use
  Company Number: CA-ABBVIE-22K-028-4265376-00

PATIENT
  Sex: Male

DRUGS (2)
  1. HUMIRA [Suspect]
     Active Substance: ADALIMUMAB
     Indication: Ankylosing spondylitis
     Route: 058
  2. HUMIRA [Suspect]
     Active Substance: ADALIMUMAB
     Indication: Uveitis
     Route: 058
     Dates: start: 20200409

REACTIONS (6)
  - Meniscus removal [Unknown]
  - Accident at work [Unknown]
  - Joint dislocation [Unknown]
  - Meniscus injury [Unknown]
  - Therapeutic response shortened [Unknown]
  - Muscle atrophy [Unknown]
